FAERS Safety Report 22629559 (Version 1)
Quarter: 2023Q2

REPORT INFORMATION
  Report Type: Spontaneous
  Country: GB (occurrence: GB)
  Receive Date: 20230622
  Receipt Date: 20230622
  Transmission Date: 20230721
  Serious: Yes (Hospitalization)
  Sender: FDA-Public Use
  Company Number: GB-MYLANLABS-2023M1064464

PATIENT
  Sex: Female

DRUGS (2)
  1. CLOZARIL [Suspect]
     Active Substance: CLOZAPINE
     Indication: Schizophrenia
     Dosage: UNK
     Route: 048
     Dates: start: 20230109
  2. COCAINE [Concomitant]
     Active Substance: COCAINE
     Dosage: 1 GRAM, QD
     Route: 065

REACTIONS (4)
  - Hospitalisation [Recovered/Resolved]
  - Akathisia [Unknown]
  - Tachycardia [Unknown]
  - Therapy interrupted [Unknown]
